FAERS Safety Report 20684580 (Version 1)
Quarter: 2022Q2

REPORT INFORMATION
  Report Type: Spontaneous
  Country: US (occurrence: None)
  Receive Date: 20220406
  Receipt Date: 20220406
  Transmission Date: 20220721
  Serious: No
  Sender: FDA-Public Use
  Company Number: None

PATIENT
  Age: 54 Year
  Sex: Female
  Weight: 90 kg

DRUGS (1)
  1. NURTEC ODT [Suspect]
     Active Substance: RIMEGEPANT SULFATE
     Indication: Migraine
     Dosage: OTHER QUANTITY : 1 CAPSULE(S);?FREQUENCY : AS NEEDED;?
     Route: 060
     Dates: start: 20211008, end: 20211030

REACTIONS (4)
  - Nausea [None]
  - Vomiting [None]
  - Drug ineffective [None]
  - Diarrhoea [None]

NARRATIVE: CASE EVENT DATE: 20211008
